FAERS Safety Report 10080800 (Version 1)
Quarter: 2014Q2

REPORT INFORMATION
  Report Type: Spontaneous
  Country: US (occurrence: None)
  Receive Date: 20140414
  Receipt Date: 20140414
  Transmission Date: 20141212
  Serious: Yes (Other)
  Sender: FDA-Public Use
  Company Number: 2014-19302

PATIENT
  Sex: Female

DRUGS (11)
  1. EYLEA [Suspect]
     Indication: RETINAL VEIN OCCLUSION
     Dosage: 2 MG MILLIGRAM(S), EVERY 4-6 WEEKS, INTRAOCULAR
     Route: 031
     Dates: start: 201304, end: 20140328
  2. LISINOPRIL (LISINOPRIL) [Concomitant]
  3. NAPROXEN [Concomitant]
  4. ALLOPURINOL [Concomitant]
  5. ASPIRIN (ACETYLSALICYLIC ACID) [Concomitant]
  6. KLOR CON (POTASSIUM CHLORIDE) [Concomitant]
  7. COLCHICINE [Concomitant]
  8. LIPITOR (ATORVASTATIN CALCIUM) [Concomitant]
  9. LASIX (FUROSEMIDE) [Concomitant]
  10. MULTIVITAMIN (ASCORBIC ACID, CALCIUM PANTOTHENATE, ERGOCALCIFEROL, NICOTINAMIDE, PYRIDOXINE HYDROCHLORIDE, RETINOL, RIBOFLAVIN, THIAMINE HYDROCHLORIDE) [Concomitant]
  11. DIGOXIN (DIGOXIN) [Suspect]

REACTIONS (2)
  - Cystoid macular oedema [None]
  - Disease recurrence [None]
